FAERS Safety Report 20326816 (Version 1)
Quarter: 2022Q1

REPORT INFORMATION
  Report Type: Spontaneous
  Country: IN (occurrence: IN)
  Receive Date: 20220112
  Receipt Date: 20220112
  Transmission Date: 20220423
  Serious: Yes (Other)
  Sender: FDA-Public Use
  Company Number: IN-LUPIN LIMITED-2021-26851

PATIENT
  Age: 21 Year
  Sex: Male

DRUGS (9)
  1. LEVETIRACETAM [Suspect]
     Active Substance: LEVETIRACETAM
     Indication: Partial seizures
     Dosage: 3 GRAM, QD
     Route: 065
  2. CLOBAZAM [Suspect]
     Active Substance: CLOBAZAM
     Indication: Partial seizures
     Dosage: 20 MILLIGRAM, QD
     Route: 065
  3. OXCARBAZEPINE [Suspect]
     Active Substance: OXCARBAZEPINE
     Indication: Partial seizures
     Dosage: 1200 MILLIGRAM, QD
     Route: 065
  4. DEXAMETHASONE [Concomitant]
     Active Substance: DEXAMETHASONE
     Indication: Premedication
     Dosage: UNK, SCHEDULED TO RECEIVE 0.2 MG/KG/BODY WEIGHT FOR 6 WEEKS (DIVIDED INTO THREE DOSES)
     Route: 042
  5. DEXAMETHASONE [Concomitant]
     Active Substance: DEXAMETHASONE
     Indication: Neurocysticercosis
     Dosage: UNK, SCHEDULED TO RECEIVE FOR 6 WEEKS
     Route: 048
  6. ALBENDAZOLE [Concomitant]
     Active Substance: ALBENDAZOLE
     Indication: Neurocysticercosis
     Dosage: 200 MILLIGRAM, QD
     Route: 048
  7. ALBENDAZOLE [Concomitant]
     Active Substance: ALBENDAZOLE
     Indication: Premedication
     Dosage: UNK, THE DOSE WAS GRADUALLAXY INCREASED TO THE TARGET DOSE OF 15 MG/KG/DAY (MAXIMUM 1200 MG/DAY), WI
     Route: 048
  8. PRAZIQUANTEL [Concomitant]
     Active Substance: PRAZIQUANTEL
     Indication: Neurocysticercosis
     Dosage: 300 MILLIGRAM, QD
     Route: 048
  9. PRAZIQUANTEL [Concomitant]
     Active Substance: PRAZIQUANTEL
     Indication: Premedication
     Dosage: UNK, THE DOSE WAS UP-TITRATED BY 300 MG EVERY 3 DAYS (SWITCHING TO TWICE DAILY DOSAGE) TO THE TARGET
     Route: 048

REACTIONS (1)
  - Drug ineffective [Unknown]
